FAERS Safety Report 10282996 (Version 1)
Quarter: 2014Q3

REPORT INFORMATION
  Report Type: Spontaneous
  Country: US (occurrence: US)
  Receive Date: 20140708
  Receipt Date: 20140708
  Transmission Date: 20150326
  Serious: No
  Sender: FDA-Public Use
  Company Number: US-BIOGENIDEC-2014BI060053

PATIENT
  Age: 53 Year
  Sex: Female

DRUGS (19)
  1. KLOR-CON M20 [Concomitant]
     Active Substance: POTASSIUM CHLORIDE
  2. LASIX [Concomitant]
     Active Substance: FUROSEMIDE
  3. REQUIP [Concomitant]
     Active Substance: ROPINIROLE HYDROCHLORIDE
  4. VITAMIN C [Concomitant]
     Active Substance: ASCORBIC ACID
  5. LUMIGAN [Concomitant]
     Active Substance: BIMATOPROST
  6. ZOCOR [Concomitant]
     Active Substance: SIMVASTATIN
  7. ASPIRIN. [Concomitant]
     Active Substance: ASPIRIN
  8. MAGOX 400 [Concomitant]
  9. NEURONTIN [Concomitant]
     Active Substance: GABAPENTIN
  10. OSCAL 500/200 D-3 [Concomitant]
  11. TECFIDERA [Suspect]
     Active Substance: DIMETHYL FUMARATE
     Indication: MULTIPLE SCLEROSIS
     Route: 048
     Dates: start: 20140411
  12. ALDACTONE [Concomitant]
     Active Substance: SPIRONOLACTONE
  13. FIBERCON [Concomitant]
     Active Substance: CALCIUM POLYCARBOPHIL
  14. CELEXA [Concomitant]
     Active Substance: CITALOPRAM HYDROBROMIDE
  15. AMANTADINE HCL [Concomitant]
     Active Substance: AMANTADINE HYDROCHLORIDE
  16. METFORMIN HCL [Concomitant]
     Active Substance: METFORMIN HYDROCHLORIDE
  17. TENORMIN [Concomitant]
     Active Substance: ATENOLOL
  18. COSOPT [Concomitant]
     Active Substance: DORZOLAMIDE HYDROCHLORIDE\TIMOLOL MALEATE
  19. ULTRAM [Concomitant]
     Active Substance: TRAMADOL HYDROCHLORIDE

REACTIONS (1)
  - Fatigue [Not Recovered/Not Resolved]

NARRATIVE: CASE EVENT DATE: 20140414
